FAERS Safety Report 6889344-1 (Version None)
Quarter: 2010Q3

REPORT INFORMATION
  Report Type: 
  Country: None (occurrence: None)
  Receive Date: 20100730
  Receipt Date: 20080212
  Transmission Date: 20110219
  Serious: No
  Sender: FDA-Public Use
  Company Number: US-PFIZER INC-2008011737

PATIENT
  Sex: Male

DRUGS (2)
  1. LIPITOR [Suspect]
  2. LOPID [Suspect]

REACTIONS (3)
  - HYPERSENSITIVITY [None]
  - LOW DENSITY LIPOPROTEIN ABNORMAL [None]
  - SKIN REACTION [None]
